FAERS Safety Report 16393776 (Version 1)
Quarter: 2019Q2

REPORT INFORMATION
  Report Type: Spontaneous
  Country: PL (occurrence: PL)
  Receive Date: 20190605
  Receipt Date: 20190605
  Transmission Date: 20190711
  Serious: Yes (Hospitalization, Other)
  Sender: FDA-Public Use
  Company Number: PL-VIIV HEALTHCARE LIMITED-PL2019GSK099639

PATIENT
  Age: 52 Year
  Sex: Male

DRUGS (4)
  1. TENOFOVIR DISOPROXIL FUMARATE. [Suspect]
     Active Substance: TENOFOVIR DISOPROXIL FUMARATE
     Indication: ANTIRETROVIRAL THERAPY
     Dosage: 300 MG, QD
  2. RITONAVIR. [Suspect]
     Active Substance: RITONAVIR
     Indication: ANTIRETROVIRAL THERAPY
     Dosage: 100 MG, QD
  3. LAMIVUDINE AND ZIDOVUDINE [Suspect]
     Active Substance: LAMIVUDINE\ZIDOVUDINE
     Indication: ANTIRETROVIRAL THERAPY
     Dosage: 150/300 MG TWICE A DAY
  4. DARUNAVIR [Suspect]
     Active Substance: DARUNAVIR
     Indication: ANTIRETROVIRAL THERAPY
     Dosage: 800 MG, QD

REACTIONS (9)
  - Nervous system disorder [Recovered/Resolved]
  - Psychomotor retardation [Recovered/Resolved]
  - Confusional state [Recovered/Resolved]
  - Cranial nerve palsies multiple [Recovered/Resolved]
  - Encephalitis [Recovered/Resolved]
  - Headache [Recovered/Resolved]
  - Cerebellar syndrome [Recovered/Resolved]
  - Relapsing fever [Recovered/Resolved]
  - Immune reconstitution inflammatory syndrome [Recovered/Resolved]
